FAERS Safety Report 10496191 (Version 3)
Quarter: 2014Q4

REPORT INFORMATION
  Report Type: Spontaneous
  Country: BR (occurrence: BR)
  Receive Date: 20141003
  Receipt Date: 20141022
  Transmission Date: 20150528
  Serious: Yes (Hospitalization, Other)
  Sender: FDA-Public Use
  Company Number: BR-PFIZER INC-2014270308

PATIENT
  Sex: Male

DRUGS (2)
  1. VIAGRA [Suspect]
     Active Substance: SILDENAFIL CITRATE
     Indication: PULMONARY ARTERIAL HYPERTENSION
     Dosage: 50 MG, EVERY 8 HOURS (THREE TIMES PER DAY)
     Route: 064
     Dates: start: 2008
  2. FOLINIC ACID [Concomitant]
     Active Substance: LEUCOVORIN
     Indication: BLOOD FOLATE DECREASED
     Dosage: 15 MG, 2X/DAY
     Route: 064
     Dates: start: 2008

REACTIONS (6)
  - Apnoea [Unknown]
  - Premature baby [Unknown]
  - Maternal exposure during pregnancy [Unknown]
  - Low birth weight baby [Unknown]
  - Amniotic fluid volume increased [Unknown]
  - Influenza [Unknown]

NARRATIVE: CASE EVENT DATE: 201205
